FAERS Safety Report 20716557 (Version 1)
Quarter: 2022Q2

REPORT INFORMATION
  Report Type: Spontaneous
  Country: US (occurrence: US)
  Receive Date: 20220416
  Receipt Date: 20220416
  Transmission Date: 20220721
  Serious: Yes (Death, Hospitalization, Other)
  Sender: FDA-Public Use
  Company Number: US-UNITED THERAPEUTICS-UNT-2022-008173

PATIENT
  Age: 42 Year
  Sex: Female

DRUGS (4)
  1. REMODULIN [Suspect]
     Active Substance: TREPROSTINIL
     Indication: Pulmonary hypertension
     Dosage: UNK UNK, CONTINUING
     Route: 058
  2. MACITENTAN [Concomitant]
     Active Substance: MACITENTAN
     Indication: Pulmonary hypertension
     Route: 065
  3. TADALAFIL [Concomitant]
     Active Substance: TADALAFIL
     Indication: Pulmonary hypertension
     Route: 065
  4. MYCOPHENOLIC ACID [Concomitant]
     Active Substance: MYCOPHENOLIC ACID
     Indication: Product used for unknown indication
     Route: 065

REACTIONS (9)
  - Cardiogenic shock [Fatal]
  - Respiratory failure [Fatal]
  - Hepatic failure [Fatal]
  - Renal failure [Fatal]
  - Cardiac arrest [Fatal]
  - Pulmonary capillary haemangiomatosis [Fatal]
  - Acute respiratory distress syndrome [Unknown]
  - Syncope [Unknown]
  - Hypoxia [Unknown]
